FAERS Safety Report 17991225 (Version 3)
Quarter: 2020Q4

REPORT INFORMATION
  Report Type: Spontaneous
  Country: US (occurrence: US)
  Receive Date: 20200707
  Receipt Date: 20201215
  Transmission Date: 20210113
  Serious: Yes (Other)
  Sender: FDA-Public Use
  Company Number: US-GILEAD-2020-0476563

PATIENT
  Sex: Male

DRUGS (2)
  1. VIREAD [Suspect]
     Active Substance: TENOFOVIR DISOPROXIL FUMARATE
     Indication: HIV INFECTION
     Dosage: UNK
     Route: 048
     Dates: start: 2015
  2. ATRIPLA [Suspect]
     Active Substance: EFAVIRENZ\EMTRICITABINE\TENOFOVIR DISOPROXIL FUMARATE
     Indication: HIV INFECTION
     Dosage: UNK
     Route: 048
     Dates: start: 2015, end: 2019

REACTIONS (8)
  - Osteopenia [Recovered/Resolved]
  - Multiple fractures [Unknown]
  - Tooth loss [Not Recovered/Not Resolved]
  - Osteonecrosis [Unknown]
  - Bone loss [Unknown]
  - Renal injury [Unknown]
  - Skeletal injury [Unknown]
  - Bone density decreased [Unknown]

NARRATIVE: CASE EVENT DATE: 2016
